FAERS Safety Report 5630297-1 (Version None)
Quarter: 2008Q1

REPORT INFORMATION
  Report Type: 
  Country: None (occurrence: None)
  Receive Date: 20080219
  Receipt Date: 20080211
  Transmission Date: 20080703
  Serious: Yes (Disabling)
  Sender: FDA-Public Use
  Company Number: FR-AVENTIS-200713470FR

PATIENT
  Age: 67 Year
  Sex: Male

DRUGS (4)
  1. TAXOTERE [Suspect]
     Route: 042
     Dates: start: 20050103, end: 20050419
  2. ZOMETA [Suspect]
     Route: 042
  3. CLASTOBAN [Suspect]
     Route: 048
     Dates: start: 20040816, end: 20050503
  4. ALIMTA [Suspect]
     Route: 042
     Dates: start: 20060209, end: 20070131

REACTIONS (1)
  - OSTEONECROSIS [None]
